FAERS Safety Report 13453557 (Version 1)
Quarter: 2017Q2

REPORT INFORMATION
  Report Type: Spontaneous
  Country: US (occurrence: US)
  Receive Date: 20170418
  Receipt Date: 20170418
  Transmission Date: 20170830
  Serious: No
  Sender: FDA-Public Use
  Company Number: US-ALLERGAN-1663378US

PATIENT
  Sex: Female

DRUGS (2)
  1. LATISSE [Suspect]
     Active Substance: BIMATOPROST
     Dosage: UNK, QHS
     Route: 061
     Dates: start: 20160615, end: 20160622
  2. LATISSE [Suspect]
     Active Substance: BIMATOPROST
     Indication: GROWTH OF EYELASHES
     Dosage: UNK, PRN
     Route: 061
     Dates: start: 201605, end: 2016

REACTIONS (11)
  - Ocular hyperaemia [Recovered/Resolved]
  - Hair growth abnormal [Unknown]
  - Eye swelling [Recovered/Resolved]
  - Trichiasis [Recovered/Resolved]
  - Eye irritation [Unknown]
  - Ocular discomfort [Recovered/Resolved]
  - Eyelid sensory disorder [Recovered/Resolved]
  - Eye pain [Recovered/Resolved]
  - Inappropriate schedule of drug administration [Unknown]
  - Madarosis [Not Recovered/Not Resolved]
  - Dry eye [Unknown]

NARRATIVE: CASE EVENT DATE: 2016
